FAERS Safety Report 13296760 (Version 1)
Quarter: 2017Q1

REPORT INFORMATION
  Report Type: Spontaneous
  Country: US (occurrence: US)
  Receive Date: 20170306
  Receipt Date: 20170306
  Transmission Date: 20170428
  Serious: No
  Sender: FDA-Public Use
  Company Number: US-ELI_LILLY_AND_COMPANY-US201702009864

PATIENT
  Age: 71 Year
  Sex: Female

DRUGS (2)
  1. IXEKIZUMAB [Suspect]
     Active Substance: IXEKIZUMAB
     Indication: PSORIASIS
     Dosage: UNK, UNKNOWN
     Route: 065
     Dates: start: 20161208
  2. IXEKIZUMAB [Suspect]
     Active Substance: IXEKIZUMAB
     Indication: PSORIASIS

REACTIONS (2)
  - Drug ineffective [Unknown]
  - Skin plaque [Recovering/Resolving]

NARRATIVE: CASE EVENT DATE: 201702
